FAERS Safety Report 10456376 (Version 1)
Quarter: 2014Q3

REPORT INFORMATION
  Report Type: Spontaneous
  Country: US (occurrence: None)
  Receive Date: 20140821
  Receipt Date: 20140821
  Transmission Date: 20150326
  Serious: Yes (Other)
  Sender: FDA-Public Use
  Company Number: VAL_03015_2014

PATIENT
  Sex: Male

DRUGS (1)
  1. BENAZEPRIL [Suspect]
     Active Substance: BENAZEPRIL\BENAZEPRIL HYDROCHLORIDE
     Indication: BLOOD PRESSURE ABNORMAL
     Dosage: DF
     Dates: start: 2011

REACTIONS (3)
  - Swollen tongue [None]
  - Dyspnoea [None]
  - Obstructive airways disorder [None]

NARRATIVE: CASE EVENT DATE: 20140216
